FAERS Safety Report 5531420-X (Version None)
Quarter: 2007Q4

REPORT INFORMATION
  Report Type: 
  Country: None (occurrence: None)
  Receive Date: 20071128
  Receipt Date: 20071113
  Transmission Date: 20080405
  Serious: Yes (Other)
  Sender: FDA-Public Use
  Company Number: 230511K07CAN

PATIENT
  Sex: Female

DRUGS (1)
  1. REBIF [Suspect]
     Indication: MULTIPLE SCLEROSIS
     Dosage: 44 MCG, 3 IN 1 WEEKS
     Dates: start: 20060228

REACTIONS (5)
  - BLOOD TEST ABNORMAL [None]
  - INJECTION SITE PAIN [None]
  - MENORRHAGIA [None]
  - POST PROCEDURAL COMPLICATION [None]
  - POSTOPERATIVE WOUND INFECTION [None]
